FAERS Safety Report 4356764-9 (Version None)
Quarter: 2004Q2

REPORT INFORMATION
  Report Type: 
  Country: None (occurrence: None)
  Receive Date: 20040507
  Receipt Date: 20040426
  Transmission Date: 20050107
  Serious: Yes (Other)
  Sender: FDA-Public Use
  Company Number: 2004028755

PATIENT
  Age: 23 Year
  Sex: Female
  Weight: 56.6996 kg

DRUGS (1)
  1. LUDEN'S (MENTHOL, PECTIN) [Suspect]
     Dosage: 1 DROP 4 TIMES WITHIN 5
     Dates: start: 20040423, end: 20040423

REACTIONS (3)
  - DRUG INEFFECTIVE [None]
  - SELF-MEDICATION [None]
  - URTICARIA [None]
